FAERS Safety Report 8093429-4 (Version None)
Quarter: 2012Q1

REPORT INFORMATION
  Report Type: 
  Country: None (occurrence: None)
  Receive Date: 20120128
  Receipt Date: 20110901
  Transmission Date: 20120608
  Serious: No
  Sender: FDA-Public Use
  Company Number: US-ABBOTT-11P-163-0850955-00

PATIENT
  Age: 50 Year
  Sex: Female

DRUGS (4)
  1. INDERAL [Concomitant]
     Indication: MIGRAINE
  2. LOTREL [Concomitant]
     Indication: HYPERTENSION
     Dosage: 10/40 MG DAILY
  3. HUMIRA [Suspect]
     Indication: COLITIS ULCERATIVE
     Dosage: 40 MG QOW
     Dates: start: 20110802
  4. LIALDA [Concomitant]
     Indication: IRRITABLE BOWEL SYNDROME

REACTIONS (1)
  - PAIN [None]
